FAERS Safety Report 6580215 (Version 1)
Quarter: 2020Q3

REPORT INFORMATION
  Report Type: Report from Study
  Country: US (occurrence: IN)
  Receive Date: 20080313
  Receipt Date: 20080313
  Transmission Date: 20201104
  Serious: Yes (Other)
  Sender: FDA-Public Use
  Company Number: IN-JNJFOC-20080302078

PATIENT

DRUGS (4)
  1. NATRECOR [Suspect]
     Active Substance: NESIRITIDE
     Indication: CARDIAC FAILURE ACUTE
     Route: 042
  2. PLACEBO [Suspect]
     Active Substance: UNSPECIFIED INGREDIENT
     Indication: CARDIAC FAILURE ACUTE
     Route: 042
  3. ASPIRIN. [Suspect]
     Active Substance: ASPIRIN
     Indication: PRODUCT USED FOR UNKNOWN INDICATION
  4. NATRECOR [Suspect]
     Active Substance: NESIRITIDE
     Indication: CARDIAC FAILURE ACUTE
     Route: 042

REACTIONS (1)
  - Gastritis [Unknown]

NARRATIVE: CASE EVENT DATE: 20080306
